FAERS Safety Report 23755746 (Version 1)
Quarter: 2024Q2

REPORT INFORMATION
  Report Type: Spontaneous
  Country: AT (occurrence: AT)
  Receive Date: 20240418
  Receipt Date: 20240418
  Transmission Date: 20240716
  Serious: Yes (Other)
  Sender: FDA-Public Use
  Company Number: AT-GLAXOSMITHKLINE-AT2024EME048987

PATIENT

DRUGS (15)
  1. MOMELOTINIB DIHYDROCHLORIDE [Suspect]
     Active Substance: MOMELOTINIB DIHYDROCHLORIDE
     Indication: Product used for unknown indication
     Dosage: 10 MG
     Dates: start: 202303
  2. MOMELOTINIB DIHYDROCHLORIDE [Suspect]
     Active Substance: MOMELOTINIB DIHYDROCHLORIDE
     Dosage: 10 MG
     Dates: start: 20230726
  3. MOMELOTINIB DIHYDROCHLORIDE [Suspect]
     Active Substance: MOMELOTINIB DIHYDROCHLORIDE
     Dosage: 10 MG
     Dates: start: 20231117
  4. MOMELOTINIB DIHYDROCHLORIDE [Suspect]
     Active Substance: MOMELOTINIB DIHYDROCHLORIDE
     Dosage: 10 MG
     Dates: start: 20230305
  5. FEDRATINIB [Concomitant]
     Active Substance: FEDRATINIB
     Indication: Product used for unknown indication
     Dosage: UNK
     Dates: start: 20211201
  6. FEDRATINIB [Concomitant]
     Active Substance: FEDRATINIB
     Dosage: UNK
     Dates: start: 20220120
  7. FEDRATINIB [Concomitant]
     Active Substance: FEDRATINIB
     Dosage: UNK
     Dates: start: 20220405
  8. FEDRATINIB [Concomitant]
     Active Substance: FEDRATINIB
     Dosage: UNK
     Dates: start: 20220405
  9. FEDRATINIB [Concomitant]
     Active Substance: FEDRATINIB
     Dosage: UNK
     Dates: start: 20220428
  10. FEDRATINIB [Concomitant]
     Active Substance: FEDRATINIB
     Dosage: UNK
     Dates: start: 20220504
  11. FEDRATINIB [Concomitant]
     Active Substance: FEDRATINIB
     Dosage: UNK
     Dates: start: 20220608
  12. FEDRATINIB [Concomitant]
     Active Substance: FEDRATINIB
     Dosage: UNK
     Dates: start: 20220627
  13. FEDRATINIB [Concomitant]
     Active Substance: FEDRATINIB
     Dosage: UNK
     Dates: start: 20221004
  14. FEDRATINIB [Concomitant]
     Active Substance: FEDRATINIB
     Dosage: UNK
     Dates: start: 20221130
  15. FEDRATINIB [Concomitant]
     Active Substance: FEDRATINIB
     Dosage: UNK
     Dates: start: 20221229

REACTIONS (5)
  - Myelofibrosis [Unknown]
  - Myeloproliferative neoplasm [Unknown]
  - Nausea [Unknown]
  - Thrombocytosis [Unknown]
  - Anaemia [Unknown]
